FAERS Safety Report 17770334 (Version 1)
Quarter: 2020Q2

REPORT INFORMATION
  Report Type: Spontaneous
  Country: US (occurrence: US)
  Receive Date: 20200512
  Receipt Date: 20200512
  Transmission Date: 20200714
  Serious: Yes (Hospitalization, Other)
  Sender: FDA-Public Use
  Company Number: US-ACCORD-180211

PATIENT
  Age: 77 Year
  Sex: Female

DRUGS (2)
  1. LEVETIRACETAM. [Suspect]
     Active Substance: LEVETIRACETAM
     Indication: PSYCHOTIC SYMPTOM
     Dosage: TWICE
  2. SERTRALINE [Concomitant]
     Active Substance: SERTRALINE HYDROCHLORIDE
     Indication: PSYCHOTIC SYMPTOM

REACTIONS (7)
  - Anxiety [Recovered/Resolved]
  - Catastrophic reaction [Recovered/Resolved]
  - Treatment noncompliance [Unknown]
  - Depression [Recovered/Resolved]
  - Asthenia [Recovered/Resolved]
  - Self-injurious ideation [Recovered/Resolved]
  - Loss of personal independence in daily activities [Recovered/Resolved]
